FAERS Safety Report 7720764-9 (Version None)
Quarter: 2011Q3

REPORT INFORMATION
  Report Type: 
  Country: None (occurrence: None)
  Receive Date: 20110831
  Receipt Date: 20110825
  Transmission Date: 20111222
  Serious: Yes (Disabling)
  Sender: FDA-Public Use
  Company Number: ZA-ASTELLAS-2011EU005774

PATIENT
  Sex: Female
  Weight: 72 kg

DRUGS (2)
  1. VESICARE [Suspect]
     Indication: URGE INCONTINENCE
     Dosage: 1 DF, UID/QD
     Route: 048
     Dates: start: 20110622, end: 20110625
  2. EVOREL [Concomitant]
     Indication: HORMONE REPLACEMENT THERAPY
     Dosage: 1 DF, UID/QD
     Route: 062

REACTIONS (2)
  - LOSS OF CONSCIOUSNESS [None]
  - HEADACHE [None]
